FAERS Safety Report 7265479-9 (Version None)
Quarter: 2011Q1

REPORT INFORMATION
  Report Type: 
  Country: None (occurrence: None)
  Receive Date: 20110131
  Receipt Date: 20110125
  Transmission Date: 20110831
  Serious: Yes (Other)
  Sender: FDA-Public Use
  Company Number: PHHY2011US02405

PATIENT
  Sex: Female

DRUGS (5)
  1. COQ10 [Concomitant]
     Dosage: UNK
  2. LECETRIA [Concomitant]
     Dosage: UNK
  3. GILENYA [Suspect]
     Indication: RELAPSING-REMITTING MULTIPLE SCLEROSIS
     Dosage: 0.5 MG, QD
     Route: 048
     Dates: start: 20101207, end: 20110107
  4. VITAMIN D [Concomitant]
     Dosage: UNK
  5. PRAMACE [Concomitant]
     Dosage: UNK

REACTIONS (3)
  - VISUAL IMPAIRMENT [None]
  - MACULAR OEDEMA [None]
  - HEADACHE [None]
